FAERS Safety Report 10170224 (Version 1)
Quarter: 2014Q2

REPORT INFORMATION
  Report Type: Spontaneous
  Country: US (occurrence: US)
  Receive Date: 20140513
  Receipt Date: 20140513
  Transmission Date: 20141212
  Serious: No
  Sender: FDA-Public Use
  Company Number: US-TEVA-480957USA

PATIENT
  Age: 55 Year
  Sex: Male
  Weight: 113.5 kg

DRUGS (7)
  1. FENTORA [Suspect]
     Indication: SCIATICA
     Dosage: 1800 MICROGRAM DAILY;
     Route: 002
     Dates: start: 201311, end: 20140505
  2. MOBIC [Concomitant]
     Indication: PAIN
  3. MORPHINE [Concomitant]
     Indication: PAIN
  4. OXYCONTIN [Concomitant]
     Indication: PAIN
  5. HYDROCODONE [Concomitant]
     Indication: PAIN
  6. LYRICA [Concomitant]
     Indication: PAIN
  7. CYMBALTA [Concomitant]
     Indication: PAIN

REACTIONS (2)
  - Back pain [Not Recovered/Not Resolved]
  - Off label use [Unknown]
